FAERS Safety Report 21959735 (Version 1)
Quarter: 2023Q1

REPORT INFORMATION
  Report Type: Spontaneous
  Country: US (occurrence: US)
  Receive Date: 20230206
  Receipt Date: 20230206
  Transmission Date: 20230418
  Serious: No
  Sender: FDA-Public Use
  Company Number: US-GILEAD-2023-0615474

PATIENT
  Age: 89 Year
  Sex: Male

DRUGS (1)
  1. VEKLURY [Suspect]
     Active Substance: REMDESIVIR
     Indication: Product used for unknown indication
     Dosage: 200 MG
     Route: 041

REACTIONS (3)
  - Device intolerance [Unknown]
  - Intentional removal of drug delivery system by patient [Unknown]
  - Mental disorder [Unknown]
